FAERS Safety Report 7811677-2 (Version None)
Quarter: 2011Q4

REPORT INFORMATION
  Report Type: 
  Country: None (occurrence: None)
  Receive Date: 20111013
  Receipt Date: 20110929
  Transmission Date: 20120403
  Serious: Yes (Death)
  Sender: FDA-Public Use
  Company Number: JP-PFIZER INC-2011243880

PATIENT
  Age: 81 Year
  Sex: Male

DRUGS (1)
  1. PIPERACILLIN AND TAZOBACTAM [Suspect]
     Dosage: 13.5 G DAILY
     Route: 041
     Dates: start: 20110912, end: 20110917

REACTIONS (1)
  - DEATH [None]
